FAERS Safety Report 11467645 (Version 3)
Quarter: 2015Q4

REPORT INFORMATION
  Report Type: Report from Study
  Country: AR (occurrence: AR)
  Receive Date: 20150908
  Receipt Date: 20151013
  Transmission Date: 20160304
  Serious: Yes (Other)
  Sender: FDA-Public Use
  Company Number: PHHY2015AR106286

PATIENT
  Sex: Female

DRUGS (2)
  1. DIOVAN [Suspect]
     Active Substance: VALSARTAN
     Indication: ARRHYTHMIA
     Dosage: 320 MG, QD (SINCE TWO YEARS AGO)
     Route: 065
  2. DIOVAN [Suspect]
     Active Substance: VALSARTAN
     Indication: HYPERTENSION
     Dosage: 2 DF, QD (320MG+160MG AT NIGHT)
     Route: 065

REACTIONS (7)
  - Post-traumatic stress disorder [Recovered/Resolved]
  - Parathyroid disorder [Unknown]
  - Nervousness [Recovered/Resolved]
  - Blood pressure increased [Recovered/Resolved]
  - Emotional disorder [Unknown]
  - Off label use [Unknown]
  - Thyroid hormones increased [Unknown]
